FAERS Safety Report 4945272-X (Version None)
Quarter: 2006Q1

REPORT INFORMATION
  Report Type: 
  Country: None (occurrence: None)
  Receive Date: 20060316
  Receipt Date: 20060213
  Transmission Date: 20060701
  Serious: Yes (Other)
  Sender: FDA-Public Use
  Company Number: PHEH2006US02086

PATIENT
  Age: 7 Year
  Sex: Male
  Weight: 41 kg

DRUGS (4)
  1. TRILEPTAL [Suspect]
     Indication: PARTIAL SEIZURES
     Dosage: 600 MG, BID
     Route: 048
     Dates: start: 20050607, end: 20060106
  2. TRILEPTAL [Suspect]
     Dosage: 600 MG 9 AM AND 900 MG 9 PM
     Route: 048
     Dates: start: 20060107, end: 20060109
  3. FOCALIN [Concomitant]
     Indication: ATTENTION DEFICIT/HYPERACTIVITY DISORDER
     Dosage: UNK, QD
     Route: 048
  4. FOCALIN [Concomitant]
     Dosage: 20 MG, QD
     Route: 048

REACTIONS (1)
  - HALLUCINATION, VISUAL [None]
